FAERS Safety Report 22978180 (Version 2)
Quarter: 2023Q4

REPORT INFORMATION
  Report Type: Spontaneous
  Country: SK (occurrence: SK)
  Receive Date: 20230925
  Receipt Date: 20231030
  Transmission Date: 20240109
  Serious: Yes (Hospitalization)
  Sender: FDA-Public Use
  Company Number: SK-ABBVIE-5418167

PATIENT
  Age: 18 Year
  Sex: Female

DRUGS (2)
  1. RINVOQ [Suspect]
     Active Substance: UPADACITINIB
     Indication: Dermatitis atopic
     Route: 048
  2. RINVOQ [Suspect]
     Active Substance: UPADACITINIB
     Indication: Dermatitis atopic
     Route: 048

REACTIONS (5)
  - Impetigo [Unknown]
  - Skin bacterial infection [Unknown]
  - Superinfection bacterial [Unknown]
  - Eczema herpeticum [Unknown]
  - Pyrexia [Unknown]
